FAERS Safety Report 24036676 (Version 4)
Quarter: 2024Q4

REPORT INFORMATION
  Report Type: Spontaneous
  Country: US (occurrence: US)
  Receive Date: 20240701
  Receipt Date: 20241007
  Transmission Date: 20250115
  Serious: Yes (Other)
  Sender: SANOFI AVENTIS
  Company Number: US-SA-SAC20240627000019

PATIENT
  Age: 56 Year
  Sex: Male

DRUGS (1)
  1. REZUROCK [Suspect]
     Active Substance: BELUMOSUDIL
     Indication: Peripheral T-cell lymphoma unspecified
     Dosage: 200 MG, QD
     Route: 048
     Dates: start: 20230612

REACTIONS (9)
  - Urinary retention [Unknown]
  - Erectile dysfunction [Unknown]
  - Arteriosclerosis coronary artery [Unknown]
  - Renal impairment [Unknown]
  - Product use in unapproved indication [Unknown]
  - Loss of personal independence in daily activities [Unknown]
  - Pain [Unknown]
  - Depressed mood [Unknown]
  - Haemoglobin decreased [Unknown]

NARRATIVE: CASE EVENT DATE: 20230612
